FAERS Safety Report 7146052-X (Version None)
Quarter: 2010Q4

REPORT INFORMATION
  Report Type: 
  Country: None (occurrence: None)
  Receive Date: 20101208
  Receipt Date: 20100928
  Transmission Date: 20110411
  Serious: No
  Sender: FDA-Public Use
  Company Number: US-BAYER-201022181BCC

PATIENT
  Sex: Male
  Weight: 84.091 kg

DRUGS (1)
  1. ALEVE [Suspect]
     Indication: PAIN IN EXTREMITY
     Dosage: 880 MG (DAILY DOSE), BID, ORAL
     Route: 048
     Dates: start: 20100928

REACTIONS (1)
  - NO ADVERSE EVENT [None]
